FAERS Safety Report 16221800 (Version 1)
Quarter: 2019Q2

REPORT INFORMATION
  Report Type: Spontaneous
  Country: US (occurrence: US)
  Receive Date: 20190422
  Receipt Date: 20190422
  Transmission Date: 20190711
  Serious: No
  Sender: FDA-Public Use
  Company Number: US-009507513-1904USA003749

PATIENT
  Age: 63 Year
  Sex: Male

DRUGS (6)
  1. ADVAIR HFA [Concomitant]
     Active Substance: FLUTICASONE PROPIONATE\SALMETEROL XINAFOATE
  2. GABAPENTIN. [Concomitant]
     Active Substance: GABAPENTIN
  3. PROVENTIL [Suspect]
     Active Substance: ALBUTEROL
     Dosage: TWO PUFFS BEFORE EXERCISING
     Route: 055
     Dates: start: 2019
  4. PROVENTIL [Suspect]
     Active Substance: ALBUTEROL
     Indication: ASTHMA EXERCISE INDUCED
     Dosage: 90 MCG/ACT 6.8GM; TWO PUFFS BEFORE EXERCISING
     Route: 055
     Dates: start: 2012, end: 2014
  5. BUPROPION. [Concomitant]
     Active Substance: BUPROPION
  6. PROVENTIL [Suspect]
     Active Substance: ALBUTEROL
     Indication: ASTHMA EXERCISE INDUCED
     Dosage: UNK

REACTIONS (6)
  - Abnormal behaviour [Not Recovered/Not Resolved]
  - Inability to afford medication [Recovered/Resolved]
  - Dysgraphia [Not Recovered/Not Resolved]
  - Tremor [Not Recovered/Not Resolved]
  - Expired product administered [Unknown]
  - Nervousness [Not Recovered/Not Resolved]

NARRATIVE: CASE EVENT DATE: 2014
